FAERS Safety Report 9768014 (Version 1)
Quarter: 2013Q4

REPORT INFORMATION
  Report Type: Spontaneous
  Country: US (occurrence: None)
  Receive Date: 20131217
  Receipt Date: 20131217
  Transmission Date: 20140711
  Serious: Yes (Hospitalization)
  Sender: FDA-Public Use
  Company Number: 1208USA003530

PATIENT
  Age: 72 Year
  Sex: Male

DRUGS (1)
  1. INTEGRILIN (EPTIFIBATIDE) SOLUTION FOR INJECTION [Suspect]
     Indication: ACUTE CORONARY SYNDROME
     Dosage: UNK, UNKNOWN

REACTIONS (1)
  - Thrombocytopenia [None]
